FAERS Safety Report 21909881 (Version 2)
Quarter: 2023Q1

REPORT INFORMATION
  Report Type: Spontaneous
  Country: JP (occurrence: JP)
  Receive Date: 20230125
  Receipt Date: 20230201
  Transmission Date: 20230418
  Serious: Yes (Death, Other)
  Sender: FDA-Public Use
  Company Number: JP-AMGEN-JPNSP2023006204

PATIENT

DRUGS (5)
  1. REPATHA [Suspect]
     Active Substance: EVOLOCUMAB
     Indication: Type IIa hyperlipidaemia
     Dosage: UNK
     Route: 065
  2. REPATHA [Suspect]
     Active Substance: EVOLOCUMAB
     Indication: Acute coronary syndrome
  3. REPATHA [Suspect]
     Active Substance: EVOLOCUMAB
     Indication: Chronic coronary syndrome
  4. ROSUVASTATIN [Concomitant]
     Active Substance: ROSUVASTATIN
  5. EZETIMIBE [Concomitant]
     Active Substance: EZETIMIBE

REACTIONS (5)
  - Death [Fatal]
  - Cardiac failure [Unknown]
  - Acute coronary syndrome [Unknown]
  - Revascularisation procedure [Unknown]
  - Cerebral infarction [Unknown]
